FAERS Safety Report 21410467 (Version 5)
Quarter: 2024Q4

REPORT INFORMATION
  Report Type: Spontaneous
  Country: US (occurrence: US)
  Receive Date: 20221005
  Receipt Date: 20241010
  Transmission Date: 20250115
  Serious: Yes (Death)
  Sender: NOVARTIS
  Company Number: US-NOVARTISTESTPH-NVSC2022US224978

PATIENT
  Age: 70 Year
  Sex: Male
  Weight: 84.5 kg

DRUGS (1)
  1. PLUVICTO [Suspect]
     Active Substance: LUTETIUM LU-177 VIPIVOTIDE TETRAXETAN
     Indication: Product used for unknown indication
     Dosage: UNK (4 DOSE SEQUENCE RECEIVED) (EVERY 6 WEEKS)
     Route: 042
     Dates: start: 20220720, end: 20220831

REACTIONS (2)
  - Prostate cancer [Fatal]
  - Ill-defined disorder [Not Recovered/Not Resolved]

NARRATIVE: CASE EVENT DATE: 20221115
